FAERS Safety Report 24176937 (Version 1)
Quarter: 2024Q3

REPORT INFORMATION
  Report Type: Spontaneous
  Country: CH (occurrence: CH)
  Receive Date: 20240806
  Receipt Date: 20240806
  Transmission Date: 20241017
  Serious: Yes (Other)
  Sender: CHEPLAPHARM
  Company Number: None

PATIENT
  Age: 22 Year
  Sex: Male

DRUGS (34)
  1. ETOPOSIDE PHOSPHATE [Suspect]
     Active Substance: ETOPOSIDE PHOSPHATE
     Indication: Mediastinum neoplasm
     Dosage: 3 CYCLE
  2. ETOPOSIDE PHOSPHATE [Suspect]
     Active Substance: ETOPOSIDE PHOSPHATE
     Indication: Acute megakaryocytic leukaemia
     Dosage: 3 CYCLE
  3. ETOPOSIDE PHOSPHATE [Suspect]
     Active Substance: ETOPOSIDE PHOSPHATE
     Indication: Germ cell cancer
     Dosage: 3 CYCLE
  4. ETOPOSIDE PHOSPHATE [Suspect]
     Active Substance: ETOPOSIDE PHOSPHATE
     Indication: Mediastinum neoplasm
     Dosage: ADDITIONAL CYCLES  GIVEN AT REDUCED DOSES
  5. ETOPOSIDE PHOSPHATE [Suspect]
     Active Substance: ETOPOSIDE PHOSPHATE
     Indication: Acute megakaryocytic leukaemia
     Dosage: ADDITIONAL CYCLES  GIVEN AT REDUCED DOSES
  6. ETOPOSIDE PHOSPHATE [Suspect]
     Active Substance: ETOPOSIDE PHOSPHATE
     Indication: Germ cell cancer
     Dosage: ADDITIONAL CYCLES  GIVEN AT REDUCED DOSES
  7. ETOPOSIDE PHOSPHATE [Suspect]
     Active Substance: ETOPOSIDE PHOSPHATE
     Indication: Mediastinum neoplasm
  8. ETOPOSIDE PHOSPHATE [Suspect]
     Active Substance: ETOPOSIDE PHOSPHATE
     Indication: Acute megakaryocytic leukaemia
  9. ETOPOSIDE PHOSPHATE [Suspect]
     Active Substance: ETOPOSIDE PHOSPHATE
     Indication: Germ cell cancer
  10. CYTARABINE [Suspect]
     Active Substance: CYTARABINE
     Indication: Acute megakaryocytic leukaemia
     Dosage: 3 CYCLE
  11. CYTARABINE [Suspect]
     Active Substance: CYTARABINE
     Indication: Germ cell cancer
     Dosage: 3 CYCLE
  12. CYTARABINE [Suspect]
     Active Substance: CYTARABINE
     Indication: Mediastinum neoplasm
     Dosage: 3 CYCLE
  13. CYTARABINE [Suspect]
     Active Substance: CYTARABINE
     Indication: Acute megakaryocytic leukaemia
     Dosage: 2 CYCLE
     Route: 037
  14. CYTARABINE [Suspect]
     Active Substance: CYTARABINE
     Indication: Germ cell cancer
     Dosage: 2 CYCLE
     Route: 037
  15. CYTARABINE [Suspect]
     Active Substance: CYTARABINE
     Indication: Mediastinum neoplasm
     Dosage: 2 CYCLE
     Route: 037
  16. MITOXANTRONE [Suspect]
     Active Substance: MITOXANTRONE HYDROCHLORIDE
     Indication: Acute megakaryocytic leukaemia
     Dosage: 3 CYCLE
  17. MITOXANTRONE [Suspect]
     Active Substance: MITOXANTRONE HYDROCHLORIDE
     Indication: Mediastinum neoplasm
     Dosage: 3 CYCLE
  18. MITOXANTRONE [Suspect]
     Active Substance: MITOXANTRONE HYDROCHLORIDE
     Indication: Germ cell cancer
     Dosage: 3 CYCLE
  19. CISPLATIN [Suspect]
     Active Substance: CISPLATIN
     Indication: Mediastinum neoplasm
     Dosage: 3 CYCLE
  20. CISPLATIN [Suspect]
     Active Substance: CISPLATIN
     Indication: Acute megakaryocytic leukaemia
     Dosage: 3 CYCLE
  21. CISPLATIN [Suspect]
     Active Substance: CISPLATIN
     Indication: Germ cell cancer
     Dosage: 3 CYCLE
  22. CISPLATIN [Suspect]
     Active Substance: CISPLATIN
     Indication: Mediastinum neoplasm
     Dosage: ADDITIONAL CYCLES  GIVEN AT REDUCED DOSES
  23. CISPLATIN [Suspect]
     Active Substance: CISPLATIN
     Indication: Acute megakaryocytic leukaemia
     Dosage: ADDITIONAL CYCLES  GIVEN AT REDUCED DOSES
  24. CISPLATIN [Suspect]
     Active Substance: CISPLATIN
     Indication: Germ cell cancer
     Dosage: ADDITIONAL CYCLES  GIVEN AT REDUCED DOSES
  25. METHYLPREDNISOLONE [Suspect]
     Active Substance: METHYLPREDNISOLONE
     Indication: Acute megakaryocytic leukaemia
     Dosage: 2 CYCLE
     Route: 037
  26. METHYLPREDNISOLONE [Suspect]
     Active Substance: METHYLPREDNISOLONE
     Indication: Germ cell cancer
     Dosage: 2 CYCLE
     Route: 037
  27. METHYLPREDNISOLONE [Suspect]
     Active Substance: METHYLPREDNISOLONE
     Indication: Mediastinum neoplasm
     Dosage: 2 CYCLE
     Route: 037
  28. METHYLPREDNISOLONE [Suspect]
     Active Substance: METHYLPREDNISOLONE
     Indication: Acute megakaryocytic leukaemia
  29. METHYLPREDNISOLONE [Suspect]
     Active Substance: METHYLPREDNISOLONE
     Indication: Germ cell cancer
  30. METHYLPREDNISOLONE [Suspect]
     Active Substance: METHYLPREDNISOLONE
     Indication: Mediastinum neoplasm
  31. METHOTREXATE [Suspect]
     Active Substance: METHOTREXATE
     Indication: Acute megakaryocytic leukaemia
     Dosage: 2 CYCLE
     Route: 037
  32. METHOTREXATE [Suspect]
     Active Substance: METHOTREXATE
     Indication: Germ cell cancer
     Dosage: 2 CYCLE
     Route: 037
  33. METHOTREXATE [Suspect]
     Active Substance: METHOTREXATE
     Indication: Mediastinum neoplasm
     Dosage: 2 CYCLE
     Route: 037
  34. CYCLOPHOSPHAMIDE [Suspect]
     Active Substance: CYCLOPHOSPHAMIDE
     Dosage: FOR 2 DAYS

REACTIONS (4)
  - Cystitis haemorrhagic [Unknown]
  - Haematotoxicity [Unknown]
  - Infection [Unknown]
  - Off label use [Unknown]
